FAERS Safety Report 9226080 (Version 1)
Quarter: 2013Q2

REPORT INFORMATION
  Report Type: Spontaneous
  Country: AU (occurrence: AU)
  Receive Date: 20130411
  Receipt Date: 20130411
  Transmission Date: 20140414
  Serious: Yes (Death)
  Sender: FDA-Public Use
  Company Number: AU-009507513-1304AUS003505

PATIENT
  Age: 79 Year
  Sex: Male

DRUGS (1)
  1. PROSCAR [Suspect]
     Route: 048

REACTIONS (2)
  - Death [Fatal]
  - Influenza [Fatal]
